FAERS Safety Report 8580938-4 (Version None)
Quarter: 2012Q3

REPORT INFORMATION
  Report Type: 
  Country: None (occurrence: None)
  Receive Date: 20120726
  Receipt Date: 20120710
  Transmission Date: 20120928
  Serious: Yes (Life-Threatening, Hospitalization)
  Sender: FDA-Public Use
  Company Number: 2012AP002155

PATIENT
  Age: 51 Year
  Sex: Male

DRUGS (6)
  1. ASPIRIN [Suspect]
     Indication: PRODUCT USED FOR UNKNOWN INDICATION
  2. CITALOPRAM HYDROBROMIDE [Suspect]
     Indication: PRODUCT USED FOR UNKNOWN INDICATION
  3. METOPROLOL TARTRATE [Suspect]
     Indication: PRODUCT USED FOR UNKNOWN INDICATION
  4. QUINAPRIL HCL [Suspect]
     Indication: PRODUCT USED FOR UNKNOWN INDICATION
  5. AMITRIPTYLINE HCL [Suspect]
     Indication: PRODUCT USED FOR UNKNOWN INDICATION
  6. QUETIAPINE FUMARATE [Suspect]
     Indication: PRODUCT USED FOR UNKNOWN INDICATION

REACTIONS (8)
  - MULTIPLE DRUG OVERDOSE INTENTIONAL [None]
  - CONVULSION [None]
  - AGITATION [None]
  - POISONING DELIBERATE [None]
  - CARDIOTOXICITY [None]
  - UNRESPONSIVE TO STIMULI [None]
  - SHOCK [None]
  - ABNORMAL BEHAVIOUR [None]
